FAERS Safety Report 5575444-5 (Version None)
Quarter: 2007Q4

REPORT INFORMATION
  Report Type: 
  Country: None (occurrence: None)
  Receive Date: 20071227
  Receipt Date: 20071221
  Transmission Date: 20080405
  Serious: Yes (Other)
  Sender: FDA-Public Use
  Company Number: PHHY2007BR00808

PATIENT
  Age: 47 Year
  Sex: Female
  Weight: 48 kg

DRUGS (3)
  1. ZELMAC [Suspect]
     Indication: CONSTIPATION
     Dosage: 1 TABLET, BID
     Route: 048
     Dates: start: 20070101
  2. ZELMAC [Suspect]
     Dosage: HALF TABLET, BID
  3. GLUCOFORMIN [Concomitant]
     Indication: DIABETES MELLITUS
     Dosage: 500 MG, BID
     Route: 048
     Dates: start: 20041201

REACTIONS (13)
  - COLD SWEAT [None]
  - DIARRHOEA [None]
  - DIZZINESS [None]
  - DYSPNOEA [None]
  - FATIGUE [None]
  - HEART RATE DECREASED [None]
  - HEART RATE INCREASED [None]
  - HYSTERECTOMY [None]
  - MALAISE [None]
  - PALLOR [None]
  - PALPITATIONS [None]
  - SOMNOLENCE [None]
  - SURGERY [None]
